FAERS Safety Report 6905531-8 (Version None)
Quarter: 2010Q3

REPORT INFORMATION
  Report Type: 
  Country: None (occurrence: None)
  Receive Date: 20100804
  Receipt Date: 20100723
  Transmission Date: 20110219
  Serious: Yes (Other)
  Sender: FDA-Public Use
  Company Number: JP-PFIZER INC-2010075474

PATIENT
  Age: 42 Year
  Sex: Female

DRUGS (8)
  1. PRODIF [Interacting]
     Indication: SYSTEMIC CANDIDA
     Dosage: 200 MG, 1X/DAY
     Route: 041
     Dates: start: 20100607, end: 20100611
  2. VFEND [Interacting]
     Indication: SYSTEMIC CANDIDA
     Dosage: 200 MG, 2X/DAY
     Route: 048
     Dates: start: 20100612, end: 20100629
  3. THYRADIN S [Suspect]
     Dosage: 25 UG, 1X/DAY
     Route: 048
     Dates: start: 20100611
  4. WARFARIN [Interacting]
     Indication: ATRIAL FIBRILLATION
     Dosage: 0.5 MG, 1X/DAY
     Route: 048
     Dates: start: 20100506, end: 20100617
  5. LUGOL CAP [Concomitant]
     Indication: BASEDOW'S DISEASE
     Dosage: 70 MG, 1X/DAY
     Dates: start: 20100516
  6. ARTIST [Concomitant]
     Indication: CARDIAC FAILURE
     Dosage: 2.5 MG, 1X/DAY
     Route: 048
     Dates: start: 20100419
  7. ALDACTONE [Concomitant]
     Indication: CARDIAC FAILURE
     Dosage: 2.5 MG, 1X/DAY
     Route: 048
     Dates: start: 20100423, end: 20100602
  8. COTRIM [Concomitant]
     Indication: AGRANULOCYTOSIS
     Dosage: UNK
     Route: 048
     Dates: start: 20100519, end: 20100602

REACTIONS (2)
  - DRUG INTERACTION [None]
  - INTERNATIONAL NORMALISED RATIO INCREASED [None]
